FAERS Safety Report 8766603 (Version 2)
Quarter: 2012Q4

REPORT INFORMATION
  Report Type: 
  Country: CA (occurrence: CA)
  Receive Date: 20120831
  Receipt Date: 20121005
  Transmission Date: 20130627
  Serious: Yes (Other)
  Sender: FDA-Public Use
  Company Number: CA-ELI_LILLY_AND_COMPANY-CA201208007960

PATIENT
  Sex: Female

DRUGS (2)
  1. UNKNOWN PRODUCT [Suspect]
  2. CHEMOTHERAPEUTICS [Concomitant]
     Indication: NEOPLASM MALIGNANT

REACTIONS (2)
  - Neoplasm malignant [Unknown]
  - Hypoglycaemia [Not Recovered/Not Resolved]
